FAERS Safety Report 14995438 (Version 1)
Quarter: 2018Q2

REPORT INFORMATION
  Report Type: Spontaneous
  Country: US (occurrence: US)
  Receive Date: 20180611
  Receipt Date: 20180611
  Transmission Date: 20180711
  Serious: No
  Sender: FDA-Public Use
  Company Number: US-SA-2018SA146539

PATIENT
  Sex: Female

DRUGS (22)
  1. FLUTICASONE PROPIONATE. [Concomitant]
     Active Substance: FLUTICASONE PROPIONATE
  2. AUBAGIO [Suspect]
     Active Substance: TERIFLUNOMIDE
     Dosage: 14 MG, QD
     Route: 048
  3. SENOKOT [Concomitant]
     Active Substance: SENNOSIDES
  4. ADVAIR HFA [Concomitant]
     Active Substance: FLUTICASONE PROPIONATE\SALMETEROL XINAFOATE
  5. SINGULAIR [Concomitant]
     Active Substance: MONTELUKAST SODIUM
  6. HYDROCODONE/ACETAMINOPHEN [Concomitant]
     Active Substance: ACETAMINOPHEN\HYDROCODONE
  7. VALIUM [Concomitant]
     Active Substance: DIAZEPAM
  8. BUPROPION HYDROCHLORIDE XL [Concomitant]
     Active Substance: BUPROPION HYDROCHLORIDE
  9. METHOCARBAMOL. [Concomitant]
     Active Substance: METHOCARBAMOL
  10. CEPHALEXINE [Concomitant]
     Active Substance: CEPHALEXIN
  11. METRONIDAZOLE. [Concomitant]
     Active Substance: METRONIDAZOLE
  12. LORATADINE. [Concomitant]
     Active Substance: LORATADINE
  13. TIZANIDINE HCL [Concomitant]
     Active Substance: TIZANIDINE HYDROCHLORIDE
  14. PREDNISONE. [Concomitant]
     Active Substance: PREDNISONE
  15. MELOXICAM. [Concomitant]
     Active Substance: MELOXICAM
  16. AZITHROMYCIN ANHYDROUS. [Concomitant]
     Active Substance: AZITHROMYCIN ANHYDROUS
  17. GABAPENTIN. [Concomitant]
     Active Substance: GABAPENTIN
  18. ESCITALOPRAM OXALATE. [Concomitant]
     Active Substance: ESCITALOPRAM OXALATE
  19. LORAZEPAM. [Concomitant]
     Active Substance: LORAZEPAM
  20. PERCOCET [OXYCODONE HYDROCHLORIDE;OXYCODONE TEREPHTHALATE;PARACETAMOL] [Concomitant]
  21. ABILIFY [Concomitant]
     Active Substance: ARIPIPRAZOLE
  22. ACYCLOVIR SODIUM. [Concomitant]
     Active Substance: ACYCLOVIR SODIUM

REACTIONS (2)
  - Blood glucose increased [Not Recovered/Not Resolved]
  - Hypertension [Not Recovered/Not Resolved]
